FAERS Safety Report 6258090-X (Version None)
Quarter: 2009Q3

REPORT INFORMATION
  Report Type: 
  Country: None (occurrence: None)
  Receive Date: 20090707
  Receipt Date: 20090626
  Transmission Date: 20100115
  Serious: Yes (Other)
  Sender: FDA-Public Use
  Company Number: PHHY2009GB26352

PATIENT
  Sex: Male

DRUGS (1)
  1. CLOZARIL [Suspect]
     Indication: SCHIZOPHRENIA
     Dosage: UNK
     Dates: start: 19950615

REACTIONS (5)
  - DEHYDRATION [None]
  - FATIGUE [None]
  - HEMIPARESIS [None]
  - LEARNING DISORDER [None]
  - SPEECH DISORDER [None]
